FAERS Safety Report 20255724 (Version 1)
Quarter: 2021Q4

REPORT INFORMATION
  Report Type: Spontaneous
  Country: US (occurrence: None)
  Receive Date: 20211230
  Receipt Date: 20211230
  Transmission Date: 20220303
  Serious: Yes (Death, Hospitalization, Other)
  Sender: FDA-Public Use
  Company Number: US-MICRO LABS LIMITED-ML2021-04021

PATIENT
  Age: 19 Year
  Sex: Female

DRUGS (2)
  1. BUPROPION [Suspect]
     Active Substance: BUPROPION
     Dosage: 150-ML XL BUPROPION HCL, WHICH WAS REFILLED WITH 200 TABLETS 13 DAYS PRIOR, WAS FOUND EMPTY
     Route: 048
  2. OXCARBAZEPINE [Suspect]
     Active Substance: OXCARBAZEPINE
     Dosage: BOTTLE WAS FOUND PARTIALLY EMPTY
     Route: 048

REACTIONS (14)
  - Intentional overdose [Fatal]
  - Hypertension [Fatal]
  - Ventricular hypokinesia [Fatal]
  - Electrocardiogram QT prolonged [Fatal]
  - Cardiopulmonary failure [Fatal]
  - Mydriasis [Fatal]
  - Hyperhidrosis [Fatal]
  - Metabolic acidosis [Fatal]
  - Hypothermia [Fatal]
  - Tachycardia [Fatal]
  - Hypotension [Fatal]
  - Electrocardiogram QRS complex prolonged [Fatal]
  - Seizure [Fatal]
  - Cardiac arrest [Fatal]
